FAERS Safety Report 21525897 (Version 1)
Quarter: 2022Q4

REPORT INFORMATION
  Report Type: Spontaneous
  Country: US (occurrence: None)
  Receive Date: 20221031
  Receipt Date: 20221031
  Transmission Date: 20230113
  Serious: Yes (Other)
  Sender: FDA-Public Use
  Company Number: 2022A351332

PATIENT
  Sex: Female

DRUGS (1)
  1. FARXIGA [Suspect]
     Active Substance: DAPAGLIFLOZIN PROPANEDIOL
     Route: 048

REACTIONS (12)
  - Product use issue [Unknown]
  - Dizziness [Unknown]
  - Feeling abnormal [Unknown]
  - Blood glucose decreased [Unknown]
  - Nervousness [Unknown]
  - Illness [Unknown]
  - Malaise [Unknown]
  - Blood glucose fluctuation [Unknown]
  - Nervousness [Unknown]
  - Diabetes mellitus [Unknown]
  - Nausea [Unknown]
  - Dehydration [Unknown]
